FAERS Safety Report 18403671 (Version 1)
Quarter: 2020Q4

REPORT INFORMATION
  Report Type: Report from Study
  Country: ES (occurrence: ES)
  Receive Date: 20201020
  Receipt Date: 20201020
  Transmission Date: 20210114
  Serious: Yes (Life-Threatening, Hospitalization)
  Sender: FDA-Public Use
  Company Number: ES-TEVA-2020-ES-1839140

PATIENT
  Age: 72 Year
  Sex: Male

DRUGS (6)
  1. VENLAFAXINA (2664A) [Suspect]
     Active Substance: VENLAFAXINE HYDROCHLORIDE
     Indication: DEPRESSION
     Dosage: 75MILLIGRAM
     Route: 048
     Dates: start: 2015
  2. OMEPRAZOL (2141A) [Concomitant]
     Active Substance: OMEPRAZOLE
     Indication: PROPHYLAXIS
     Dosage: 20MILLIGRAM
     Route: 048
  3. ENALAPRIL MALEATO (2142MA) [Concomitant]
     Active Substance: ENALAPRIL MALEATE
     Indication: HYPERTENSION
     Dosage: 5MILLIGRAM
     Route: 048
     Dates: start: 20120619
  4. AMLODIPINO (2503A) [Concomitant]
     Active Substance: AMLODIPINE BESYLATE
     Indication: HYPERTENSION
     Dosage: 10MILLIGRAM
     Route: 048
  5. ACETILSALICILICO ACIDO (176A) [Interacting]
     Active Substance: ASPIRIN
     Indication: CARDIAC VALVE PROSTHESIS USER
     Dosage: 100MILLIGRAM
     Route: 048
     Dates: start: 20180730, end: 20191120
  6. ALPRAZOLAM (99A) [Concomitant]
     Active Substance: ALPRAZOLAM
     Indication: DEPRESSION
     Dosage: 0.5MILLIGRAM
     Route: 048
     Dates: start: 20120619

REACTIONS (2)
  - Drug interaction [Unknown]
  - Cerebellar haematoma [Recovering/Resolving]

NARRATIVE: CASE EVENT DATE: 20191120
